FAERS Safety Report 7115713-0 (Version None)
Quarter: 2010Q4

REPORT INFORMATION
  Report Type: 
  Country: None (occurrence: None)
  Receive Date: 20101122
  Receipt Date: 20101111
  Transmission Date: 20110411
  Serious: Yes (Other)
  Sender: FDA-Public Use
  Company Number: US-NOVOPROD-318276

PATIENT
  Age: 27 Year
  Sex: Male

DRUGS (1)
  1. NOVOLOG [Suspect]
     Indication: TYPE 1 DIABETES MELLITUS
     Dosage: UNK
     Route: 058

REACTIONS (4)
  - CONTUSION [None]
  - HYPOGLYCAEMIC UNCONSCIOUSNESS [None]
  - LACERATION [None]
  - ROAD TRAFFIC ACCIDENT [None]
